FAERS Safety Report 5778735-8 (Version None)
Quarter: 2008Q2

REPORT INFORMATION
  Report Type: 
  Country: None (occurrence: None)
  Receive Date: 20080618
  Receipt Date: 20080618
  Transmission Date: 20081010
  Serious: No
  Sender: FDA-Public Use
  Company Number: None

PATIENT
  Sex: Female

DRUGS (1)
  1. GADOPENTETATE DIMEGLUMINE BAYER HEALTHCARE [Suspect]
     Indication: MENINGIOMA
     Dosage: IV
     Route: 042
     Dates: start: 20080616, end: 20080616

REACTIONS (2)
  - NAUSEA [None]
  - VOMITING [None]
